FAERS Safety Report 6424727-5 (Version None)
Quarter: 2009Q4

REPORT INFORMATION
  Report Type: 
  Country: None (occurrence: None)
  Receive Date: 20091030
  Receipt Date: 20091030
  Transmission Date: 20100525
  Serious: No
  Sender: FDA-Public Use
  Company Number: None

PATIENT
  Age: 64 Year
  Sex: Male
  Weight: 110.4 kg

DRUGS (1)
  1. HYALURONATE SODIUM [Suspect]
     Indication: OSTEOARTHRITIS
     Dosage: 2 ML QWEEK OTHER
     Route: 050
     Dates: start: 20080930, end: 20081016

REACTIONS (3)
  - INJECTION SITE REACTION [None]
  - JOINT SWELLING [None]
  - SYSTEMIC INFLAMMATORY RESPONSE SYNDROME [None]
